FAERS Safety Report 5358721-2 (Version None)
Quarter: 2007Q2

REPORT INFORMATION
  Report Type: 
  Country: None (occurrence: None)
  Receive Date: 20070615
  Receipt Date: 20070604
  Transmission Date: 20071010
  Serious: Yes (Disabling)
  Sender: FDA-Public Use
  Company Number: ES-ROCHE-489494

PATIENT
  Age: 72 Year
  Sex: Female

DRUGS (1)
  1. BONIVA [Suspect]
     Indication: OSTEOPOROSIS
     Route: 048
     Dates: start: 20070219, end: 20070219

REACTIONS (5)
  - ARTHRALGIA [None]
  - CHEST PAIN [None]
  - DYSPEPSIA [None]
  - HEADACHE [None]
  - TREMOR [None]
